FAERS Safety Report 7477960-8 (Version None)
Quarter: 2011Q2

REPORT INFORMATION
  Report Type: 
  Country: None (occurrence: None)
  Receive Date: 20110513
  Receipt Date: 20110426
  Transmission Date: 20111010
  Serious: No
  Sender: FDA-Public Use
  Company Number: US-B.I. PHARMACEUTICALS,INC./RIDGEFIELD-2011-BP-11780BP

PATIENT
  Age: 85 Year
  Sex: Female
  Weight: 78 kg

DRUGS (7)
  1. PRADAXA [Suspect]
     Indication: ATRIAL FIBRILLATION
     Dosage: 150 MG
     Dates: start: 20110329, end: 20110426
  2. MICARDIS [Concomitant]
     Dosage: 80 MG
  3. PRADAXA [Suspect]
     Dosage: 300 MG
     Route: 048
  4. PRADAXA [Suspect]
     Dosage: 225 MG
     Route: 048
  5. AMLODIPINE BESYLATE [Concomitant]
     Dosage: 10 MG
  6. LIPITOR [Concomitant]
     Dosage: 40 MG
  7. METOPROLOL SUCCINATE [Concomitant]
     Dosage: 75 MG

REACTIONS (3)
  - DYSPEPSIA [None]
  - GINGIVAL BLEEDING [None]
  - HEADACHE [None]
